FAERS Safety Report 7247822-X (Version None)
Quarter: 2011Q1

REPORT INFORMATION
  Report Type: 
  Country: None (occurrence: None)
  Receive Date: 20110127
  Receipt Date: 20110125
  Transmission Date: 20110831
  Serious: Yes (Life-Threatening, Hospitalization)
  Sender: FDA-Public Use
  Company Number: US-B.I. PHARMACEUTICALS,INC./RIDGEFIELD-2011-BP-01560BP

PATIENT
  Sex: Male

DRUGS (2)
  1. VERAPAMIL [Suspect]
     Indication: HEART RATE INCREASED
  2. PRADAXA [Suspect]
     Indication: HEART RATE INCREASED
     Route: 048
     Dates: start: 20101201, end: 20101201

REACTIONS (2)
  - HYPOTENSION [None]
  - CARDIAC ARREST [None]
